FAERS Safety Report 5333898-3 (Version None)
Quarter: 2007Q2

REPORT INFORMATION
  Report Type: 
  Country: None (occurrence: None)
  Receive Date: 20070521
  Receipt Date: 20070514
  Transmission Date: 20071010
  Serious: Yes (Death)
  Sender: FDA-Public Use
  Company Number: S07-USA-02080-01

PATIENT
  Age: 31 Year
  Sex: Female

DRUGS (2)
  1. CELEXA [Suspect]
     Indication: ANXIETY
     Dosage: 100 MG QD PO
     Route: 048
     Dates: end: 20061101
  2. CELEXA [Suspect]
     Indication: DEPRESSION
     Dosage: 100 MG QD PO
     Route: 048
     Dates: end: 20061101

REACTIONS (1)
  - CARDIAC FAILURE [None]
